FAERS Safety Report 4526647-X (Version None)
Quarter: 2004Q4

REPORT INFORMATION
  Report Type: 
  Country: None (occurrence: None)
  Receive Date: 20041214
  Receipt Date: 20041210
  Transmission Date: 20050328
  Serious: Yes (Hospitalization)
  Sender: FDA-Public Use
  Company Number: DEPFP-E-20040004

PATIENT
  Age: 67 Year
  Sex: Male

DRUGS (5)
  1. NAVELBINE [Suspect]
     Indication: NON-SMALL CELL LUNG CANCER
     Route: 042
     Dates: start: 20040804
  2. GEMCITABINE [Concomitant]
     Indication: NON-SMALL CELL LUNG CANCER
     Dates: start: 20040326, end: 20040709
  3. PANTOZOL [Concomitant]
  4. ENOXAPARIN SODIUM [Concomitant]
  5. BRONCHORETARD [Concomitant]

REACTIONS (4)
  - ASTHENIA [None]
  - COUGH [None]
  - LEUKOPENIA [None]
  - NEUTROPENIA [None]
